FAERS Safety Report 4686605-1 (Version None)
Quarter: 2005Q2

REPORT INFORMATION
  Report Type: 
  Country: None (occurrence: None)
  Receive Date: 20050607
  Receipt Date: 20050524
  Transmission Date: 20051028
  Serious: Yes (Other)
  Sender: FDA-Public Use
  Company Number: 2005079265

PATIENT
  Sex: Female

DRUGS (1)
  1. CELEBREX (CELECOXIIB) [Suspect]
     Indication: OSTEOARTHRITIS
     Dosage: ORAL
     Route: 048
     Dates: end: 20040101

REACTIONS (4)
  - FOOT OPERATION [None]
  - HIP ARTHROPLASTY [None]
  - KNEE ARTHROPLASTY [None]
  - URINARY BLADDER HAEMORRHAGE [None]
